FAERS Safety Report 6341177-0 (Version None)
Quarter: 2009Q3

REPORT INFORMATION
  Report Type: 
  Country: None (occurrence: None)
  Receive Date: 20090904
  Receipt Date: 20090313
  Transmission Date: 20100115
  Serious: No
  Sender: FDA-Public Use
  Company Number: A0774411A

PATIENT
  Sex: Female

DRUGS (1)
  1. REQUIP [Suspect]
     Indication: RESTLESS LEGS SYNDROME
     Route: 065
     Dates: start: 20050101

REACTIONS (11)
  - ANGER [None]
  - BANKRUPTCY [None]
  - COGNITIVE DISORDER [None]
  - FEAR [None]
  - FEELING ABNORMAL [None]
  - HOMELESS [None]
  - INSOMNIA [None]
  - MEMORY IMPAIRMENT [None]
  - OBSESSIVE-COMPULSIVE DISORDER [None]
  - PANIC REACTION [None]
  - PATHOLOGICAL GAMBLING [None]
